FAERS Safety Report 9664577 (Version 1)
Quarter: 2013Q4

REPORT INFORMATION
  Report Type: Report from Study
  Country: US (occurrence: US)
  Receive Date: 20131101
  Receipt Date: 20131101
  Transmission Date: 20140711
  Serious: Yes (Other)
  Sender: FDA-Public Use
  Company Number: US-ROCHE-1292615

PATIENT
  Age: 51 Year
  Sex: Female
  Weight: 51.4 kg

DRUGS (9)
  1. AVASTIN [Suspect]
     Indication: BREAST CANCER
     Route: 065
     Dates: start: 200809
  2. AVASTIN [Suspect]
     Route: 065
     Dates: start: 201007
  3. AVASTIN [Suspect]
     Route: 065
     Dates: start: 201010
  4. AVASTIN [Suspect]
     Route: 065
     Dates: start: 20091006
  5. HERCEPTIN [Suspect]
     Indication: BREAST CANCER
     Route: 065
     Dates: start: 201010
  6. TAXOL [Concomitant]
  7. CARBOPLATIN [Concomitant]
  8. ABRAXANE [Concomitant]
     Indication: BREAST CANCER
  9. ZOMETA [Concomitant]

REACTIONS (10)
  - Osteoporosis [Unknown]
  - Diastolic dysfunction [Unknown]
  - Proteinuria [Unknown]
  - Dilatation ventricular [Unknown]
  - Mitral valve incompetence [Unknown]
  - Ascites [Unknown]
  - Myocardial infarction [Unknown]
  - Metastases to peritoneum [Unknown]
  - Ventricular hypokinesia [Unknown]
  - Myocardial ischaemia [Unknown]
